FAERS Safety Report 6389984-2 (Version None)
Quarter: 2009Q4

REPORT INFORMATION
  Report Type: 
  Country: None (occurrence: None)
  Receive Date: 20091006
  Receipt Date: 20090807
  Transmission Date: 20100525
  Serious: No
  Sender: FDA-Public Use
  Company Number: US-BRISTOL-MYERS SQUIBB COMPANY-14732655

PATIENT
  Age: 70 Year
  Sex: Female
  Weight: 79 kg

DRUGS (11)
  1. AVAPRO [Suspect]
     Dates: start: 20090804
  2. AMOXICILLIN [Concomitant]
  3. BIAXIN [Concomitant]
  4. ASPIRIN [Concomitant]
  5. LEVOTHYROXINE SODIUM [Concomitant]
  6. HYDROCHLOROTHIAZIDE [Concomitant]
  7. KLONOPIN [Concomitant]
  8. LISINOPRIL [Concomitant]
  9. LIPITOR [Concomitant]
  10. CLONAZEPAM [Concomitant]
  11. TOPROL-XL [Concomitant]

REACTIONS (3)
  - OROPHARYNGEAL PAIN [None]
  - SWELLING FACE [None]
  - SWOLLEN TONGUE [None]
